FAERS Safety Report 8804116 (Version 4)
Quarter: 2020Q3

REPORT INFORMATION
  Report Type: Report from Study
  Country: BE (occurrence: BE)
  Receive Date: 20120924
  Receipt Date: 20121129
  Transmission Date: 20201104
  Serious: Yes (Hospitalization)
  Sender: FDA-Public Use
  Company Number: BE-JNJFOC-20120906646

PATIENT
  Age: 13 Year
  Sex: Male
  Weight: 69.5 kg

DRUGS (8)
  1. STEROIDS NOS [Concomitant]
     Active Substance: UNSPECIFIED INGREDIENT
  2. ATARAX [Concomitant]
     Active Substance: HYDROXYZINE HYDROCHLORIDE
  3. FENISTIL [Concomitant]
     Active Substance: DIMETHINDENE
  4. USTEKINUMAB [Suspect]
     Active Substance: USTEKINUMAB
     Indication: PSORIASIS
     Route: 058
     Dates: start: 20120613
  5. DUOFILM [Concomitant]
     Route: 061
     Dates: start: 20120726
  6. USTEKINUMAB [Suspect]
     Active Substance: USTEKINUMAB
     Route: 058
  7. TAR [Concomitant]
     Active Substance: TAR
  8. VERRUTOP [Concomitant]
     Route: 061
     Dates: start: 20120712

REACTIONS (1)
  - Psoriasis [Recovered/Resolved]

NARRATIVE: CASE EVENT DATE: 20120903
